FAERS Safety Report 4499526-4 (Version None)
Quarter: 2004Q4

REPORT INFORMATION
  Report Type: 
  Country: None (occurrence: None)
  Receive Date: 20040928
  Receipt Date: 20040714
  Transmission Date: 20050328
  Serious: No
  Sender: FDA-Public Use
  Company Number: 04P-163-0251895-00

PATIENT
  Age: 47 Year
  Sex: Female
  Weight: 75.7507 kg

DRUGS (8)
  1. HUMIRA [Suspect]
     Indication: RHEUMATOID ARTHRITIS
     Dosage: 40 MG, 1 IN 2 WK, SUBCUTANEOUS
     Route: 058
     Dates: start: 20031112, end: 20040707
  2. METHOTREXATE [Concomitant]
  3. HYDROXYCHLOROQUINE PHOSPHATE [Concomitant]
  4. FOLIC ACID [Concomitant]
  5. CALCIUM [Concomitant]
  6. FERROUS SULFATE TAB [Concomitant]
  7. THERAGAN [Concomitant]
  8. RANITIDINE [Concomitant]

REACTIONS (7)
  - DRUG INEFFECTIVE [None]
  - ERYTHEMA OF EYELID [None]
  - PRURITUS [None]
  - RASH ERYTHEMATOUS [None]
  - RASH MACULO-PAPULAR [None]
  - SKIN LESION [None]
  - SLEEP DISORDER [None]
